FAERS Safety Report 4604681-9 (Version None)
Quarter: 2005Q2

REPORT INFORMATION
  Report Type: 
  Country: None (occurrence: None)
  Receive Date: 20050223
  Receipt Date: 20041209
  Transmission Date: 20051028
  Serious: No
  Sender: FDA-Public Use
  Company Number: PHEH2004US13170

PATIENT
  Age: 65 Year
  Sex: Female

DRUGS (6)
  1. ZELNORM [Suspect]
     Indication: CONSTIPATION
     Dosage: SEE IMAGE
     Route: 048
     Dates: start: 20041130, end: 20041206
  2. ZELNORM [Suspect]
     Indication: CONSTIPATION
     Dosage: SEE IMAGE
     Route: 048
     Dates: start: 20041207
  3. MS CONTIN [Concomitant]
  4. XANAX [Concomitant]
  5. LEVOXYL (LEVOTHROXINE SODIUM) [Concomitant]
  6. ALBUTEROL [Concomitant]

REACTIONS (3)
  - CONSTIPATION [None]
  - DYSURIA [None]
  - POLLAKIURIA [None]
